FAERS Safety Report 18584134 (Version 4)
Quarter: 2023Q1

REPORT INFORMATION
  Report Type: Spontaneous
  Country: HU (occurrence: HU)
  Receive Date: 20201207
  Receipt Date: 20230216
  Transmission Date: 20230417
  Serious: Yes (Other)
  Sender: FDA-Public Use
  Company Number: HU-ROCHE-2723491

PATIENT
  Age: 33 Year
  Sex: Female

DRUGS (7)
  1. ALECTINIB [Suspect]
     Active Substance: ALECTINIB
     Indication: Metastases to central nervous system
     Route: 065
  2. ALECTINIB [Suspect]
     Active Substance: ALECTINIB
     Indication: Lung adenocarcinoma
     Route: 065
     Dates: start: 20170727, end: 201808
  3. CLARITHROMYCIN [Suspect]
     Active Substance: CLARITHROMYCIN
     Indication: Product used for unknown indication
     Route: 042
  4. CRIZOTINIB [Suspect]
     Active Substance: CRIZOTINIB
     Indication: Adenocarcinoma
     Route: 065
     Dates: start: 201602, end: 201704
  5. AMOXICILLIN [Suspect]
     Active Substance: AMOXICILLIN
     Indication: Bronchitis
     Route: 065
     Dates: start: 201510
  6. CERITINIB [Suspect]
     Active Substance: CERITINIB
     Indication: Lung adenocarcinoma
     Route: 065
     Dates: start: 201704, end: 201706
  7. CERITINIB [Suspect]
     Active Substance: CERITINIB
     Indication: Metastases to central nervous system

REACTIONS (22)
  - Metastases to thorax [Unknown]
  - Metastases to bone [Unknown]
  - Adenocarcinoma metastatic [Unknown]
  - Lung adenocarcinoma [Unknown]
  - Metastases to central nervous system [Recovering/Resolving]
  - Pleural effusion [Unknown]
  - Renal disorder [Unknown]
  - General physical health deterioration [Unknown]
  - Atelectasis [Unknown]
  - Blood alkaline phosphatase increased [Unknown]
  - Haemangioma [Unknown]
  - Gastroenteritis [Unknown]
  - C-reactive protein increased [Unknown]
  - Dyspnoea [Unknown]
  - Asthenia [Unknown]
  - Frequent bowel movements [Unknown]
  - Vomiting [Unknown]
  - Haemoglobin decreased [Unknown]
  - Fatigue [Unknown]
  - Neoplasm progression [Recovering/Resolving]
  - Drug intolerance [Unknown]
  - Maternal exposure during pregnancy [Unknown]

NARRATIVE: CASE EVENT DATE: 20151101
